FAERS Safety Report 13896341 (Version 3)
Quarter: 2018Q3

REPORT INFORMATION
  Report Type: Spontaneous
  Country: CH (occurrence: CH)
  Receive Date: 20170823
  Receipt Date: 20180817
  Transmission Date: 20181010
  Serious: Yes (Hospitalization)
  Sender: FDA-Public Use
  Company Number: CH-LPDUSPRD-20171146

PATIENT
  Age: 29 Year
  Sex: Female

DRUGS (3)
  1. FERINJECT [Suspect]
     Active Substance: FERRIC CARBOXYMALTOSE
     Dosage: 1 TOTAL
     Route: 041
     Dates: start: 20170402, end: 20170402
  2. EXCIPIAL [Concomitant]
     Dosage: 2 IN 1 D
     Route: 065
  3. PROTOPIC [Concomitant]
     Active Substance: TACROLIMUS
     Dosage: 1 IN 1 D
     Route: 065

REACTIONS (7)
  - Infusion site joint movement impairment [Recovered/Resolved]
  - Infusion site extravasation [Recovered/Resolved]
  - Off label use [Unknown]
  - Hypersensitivity [Unknown]
  - Infusion site discolouration [Not Recovered/Not Resolved]
  - Infusion site oedema [Not Recovered/Not Resolved]
  - Infusion site pain [Not Recovered/Not Resolved]

NARRATIVE: CASE EVENT DATE: 20170402
